FAERS Safety Report 8235728-9 (Version None)
Quarter: 2012Q1

REPORT INFORMATION
  Report Type: 
  Country: None (occurrence: None)
  Receive Date: 20120326
  Receipt Date: 20120321
  Transmission Date: 20120608
  Serious: Yes (Hospitalization, Other)
  Sender: FDA-Public Use
  Company Number: PHHY2012IT021475

PATIENT
  Sex: Female

DRUGS (6)
  1. ROSUVASTATIN [Concomitant]
     Dosage: 1 DF, UNK
     Route: 048
  2. VOLTAREN [Suspect]
     Indication: NECK PAIN
     Dosage: 1 DF, DAILY
     Route: 048
     Dates: start: 20111201, end: 20120127
  3. BI-EUGLUCON M [Concomitant]
     Dosage: 400 MG + 2.5 MG
     Route: 048
  4. LUCEN [Concomitant]
     Dosage: 1 DF, UNK
  5. ASPIRIN [Suspect]
     Indication: PROPHYLAXIS
     Dosage: 1 DF, DAILY
     Route: 048
     Dates: start: 20090101, end: 20120127
  6. HYDROCHLOROTHIAZIDE W/OLMESARTAN MEDOXOMIL [Concomitant]
     Dosage: 20 MG/12.5 MG

REACTIONS (5)
  - GASTRIC ULCER [None]
  - GASTRITIS [None]
  - HAEMOGLOBIN DECREASED [None]
  - ANAEMIA [None]
  - PSEUDODIVERTICULAR DISEASE [None]
